FAERS Safety Report 17604267 (Version 1)
Quarter: 2020Q1

REPORT INFORMATION
  Report Type: Spontaneous
  Country: US (occurrence: US)
  Receive Date: 20200328
  Receipt Date: 20200328
  Transmission Date: 20200409
  Serious: Yes (Hospitalization)
  Sender: FDA-Public Use
  Company Number: None

PATIENT
  Age: 58 Year
  Sex: Female
  Weight: 94.9 kg

DRUGS (3)
  1. TAXOL [Concomitant]
     Active Substance: PACLITAXEL
  2. FEMARA [Suspect]
     Active Substance: LETROZOLE
     Dates: end: 20200218
  3. CARBOPLATIN. [Concomitant]
     Active Substance: CARBOPLATIN

REACTIONS (15)
  - Nausea [None]
  - Dysuria [None]
  - Diarrhoea [None]
  - Delirium [None]
  - Pleural effusion [None]
  - Abdominal distension [None]
  - Micturition urgency [None]
  - Ileus [None]
  - Respiratory failure [None]
  - Haemoglobin decreased [None]
  - Pyrexia [None]
  - Pollakiuria [None]
  - Metastatic neoplasm [None]
  - Encephalopathy [None]
  - Abdominal pain [None]

NARRATIVE: CASE EVENT DATE: 20200219
